FAERS Safety Report 10627860 (Version 1)
Quarter: 2014Q4

REPORT INFORMATION
  Report Type: Spontaneous
  Country: US (occurrence: US)
  Receive Date: 20141205
  Receipt Date: 20141205
  Transmission Date: 20150529
  Serious: No
  Sender: FDA-Public Use
  Company Number: US-BRISTOL-MYERS SQUIBB COMPANY-21353453

PATIENT
  Age: 70 Year
  Sex: Female
  Weight: 48.07 kg

DRUGS (1)
  1. ERBITUX [Suspect]
     Active Substance: CETUXIMAB
     Indication: HEAD AND NECK CANCER
     Dates: end: 20140713

REACTIONS (4)
  - Cyanosis [Unknown]
  - Nervous system disorder [Unknown]
  - Secretion discharge [Unknown]
  - Skin disorder [Unknown]
